FAERS Safety Report 13259439 (Version 1)
Quarter: 2017Q1

REPORT INFORMATION
  Report Type: Spontaneous
  Country: US (occurrence: US)
  Receive Date: 20170222
  Receipt Date: 20170222
  Transmission Date: 20170428
  Serious: No
  Sender: FDA-Public Use
  Company Number: US-TEVA-737512ACC

PATIENT
  Sex: Female

DRUGS (9)
  1. IMITREX [Concomitant]
     Active Substance: SUMATRIPTAN SUCCINATE
  2. EVISTA [Concomitant]
     Active Substance: RALOXIFENE HYDROCHLORIDE
  3. NORTRIPTYLINE [Concomitant]
     Active Substance: NORTRIPTYLINE
  4. CALCIUM [Concomitant]
     Active Substance: CALCIUM
  5. DRISDOL [Concomitant]
     Active Substance: ERGOCALCIFEROL
  6. SIMVASTATIN. [Concomitant]
     Active Substance: SIMVASTATIN
  7. COPAXONE [Suspect]
     Active Substance: GLATIRAMER ACETATE
     Indication: PRODUCT USED FOR UNKNOWN INDICATION
     Dosage: FORM STRENGTH: UNKNOWN
  8. AMPYRA [Suspect]
     Active Substance: DALFAMPRIDINE
     Indication: MULTIPLE SCLEROSIS
     Dosage: 20 MILLIGRAM DAILY;
     Route: 048
     Dates: start: 20160209
  9. CIMETIDINE [Concomitant]
     Active Substance: CIMETIDINE

REACTIONS (1)
  - Injection site reaction [Unknown]
